FAERS Safety Report 7671536-5 (Version None)
Quarter: 2011Q3

REPORT INFORMATION
  Report Type: 
  Country: None (occurrence: None)
  Receive Date: 20110809
  Receipt Date: 20110809
  Transmission Date: 20111222
  Serious: No
  Sender: FDA-Public Use
  Company Number: None

PATIENT
  Age: 49 Year
  Sex: Male
  Weight: 79.832 kg

DRUGS (1)
  1. FINASTERIDE [Suspect]
     Indication: BENIGN PROSTATIC HYPERPLASIA
     Dates: start: 20050510, end: 20110205

REACTIONS (4)
  - ERECTILE DYSFUNCTION [None]
  - LOSS OF LIBIDO [None]
  - DEPRESSION [None]
  - ANXIETY [None]
